FAERS Safety Report 8154369-5 (Version None)
Quarter: 2012Q1

REPORT INFORMATION
  Report Type: 
  Country: None (occurrence: None)
  Receive Date: 20120103
  Receipt Date: 20111027
  Transmission Date: 20120608
  Serious: No
  Sender: FDA-Public Use
  Company Number: AE-2011-002785

PATIENT
  Sex: Male
  Weight: 88.905 kg

DRUGS (4)
  1. RIBAVIRIN [Concomitant]
  2. INCIVEK [Suspect]
     Dosage: 2250 MG (750 MG, 2 TABS Q 8 HR)
     Dates: start: 20110601
  3. PEGASYS [Concomitant]
  4. ARANESP [Concomitant]

REACTIONS (2)
  - HYPOTENSION [None]
  - SYNCOPE [None]
